FAERS Safety Report 6678212-6 (Version None)
Quarter: 2010Q2

REPORT INFORMATION
  Report Type: 
  Country: None (occurrence: None)
  Receive Date: 20100408
  Receipt Date: 20100408
  Transmission Date: 20101027
  Serious: Yes (Hospitalization)
  Sender: FDA-Public Use
  Company Number: None

PATIENT
  Age: 82 Year
  Sex: Female
  Weight: 62.1428 kg

DRUGS (2)
  1. CETUXIMAB [Suspect]
     Dosage: 250 MG/M2 IV WEEKLY
     Route: 042
     Dates: start: 20100126
  2. PACLITAXEL [Suspect]
     Indication: BLADDER TRANSITIONAL CELL CARCINOMA
     Dosage: 80 MG/M2 IV WEEKLY
     Route: 042
     Dates: start: 20100126

REACTIONS (3)
  - DERMATITIS ACNEIFORM [None]
  - EYELID DISORDER [None]
  - MEDICAL DEVICE COMPLICATION [None]
